FAERS Safety Report 5975215-1 (Version None)
Quarter: 2008Q4

REPORT INFORMATION
  Report Type: 
  Country: None (occurrence: None)
  Receive Date: 20081202
  Receipt Date: 20081001
  Transmission Date: 20090506
  Serious: No
  Sender: FDA-Public Use
  Company Number: US-BAYER-200813938BCC

PATIENT
  Age: 56 Year
  Sex: Female
  Weight: 77 kg

DRUGS (1)
  1. ALEVE (CAPLET) [Suspect]
     Indication: ENDODONTIC PROCEDURE
     Dosage: UNIT DOSE: 220 MG
     Dates: start: 20080927

REACTIONS (1)
  - ABDOMINAL PAIN UPPER [None]
